APPROVED DRUG PRODUCT: METOPROLOL TARTRATE
Active Ingredient: METOPROLOL TARTRATE
Strength: 50MG
Dosage Form/Route: TABLET;ORAL
Application: A074141 | Product #001
Applicant: HERITAGE PHARMA LABS INC
Approved: Jan 31, 1995 | RLD: No | RS: No | Type: DISCN